FAERS Safety Report 13142752 (Version 7)
Quarter: 2022Q4

REPORT INFORMATION
  Report Type: Report from Study
  Country: JP (occurrence: JP)
  Receive Date: 20170124
  Receipt Date: 20221219
  Transmission Date: 20230113
  Serious: Yes (Hospitalization)
  Sender: FDA-Public Use
  Company Number: JP-PFIZER INC-2017028174

PATIENT
  Age: 31 Year
  Sex: Female
  Weight: 50 kg

DRUGS (5)
  1. SIROLIMUS [Suspect]
     Active Substance: SIROLIMUS
     Indication: Lymphangioleiomyomatosis
     Dosage: 2 MG, DAILY (2 MG,1 D)
     Route: 048
     Dates: start: 20150416, end: 20150717
  2. SIROLIMUS [Suspect]
     Active Substance: SIROLIMUS
     Dosage: 2 MG, DAILY (2 MG,1 D)
     Route: 048
     Dates: start: 20150805
  3. THEOPHYLLINE ANHYDROUS [Concomitant]
     Active Substance: THEOPHYLLINE ANHYDROUS
     Indication: Lymphangioleiomyomatosis
     Dosage: UNK
     Route: 048
     Dates: start: 20151026
  4. SINGULAIR [Concomitant]
     Active Substance: MONTELUKAST SODIUM
     Indication: Asthma
     Dosage: UNK
     Route: 048
     Dates: start: 20160323
  5. CLARITIN REDITABS [Concomitant]
     Active Substance: LORATADINE
     Indication: Asthma
     Dosage: UNK
     Route: 048
     Dates: start: 20160406

REACTIONS (5)
  - Gastroenteritis [Recovered/Resolved]
  - Eczema [Recovered/Resolved]
  - Stomatitis [Recovering/Resolving]
  - Herpes zoster [Recovering/Resolving]
  - Dyspnoea [Not Recovered/Not Resolved]

NARRATIVE: CASE EVENT DATE: 20150420
